FAERS Safety Report 11504290 (Version 2)
Quarter: 2015Q3

REPORT INFORMATION
  Report Type: Spontaneous
  Country: US (occurrence: US)
  Receive Date: 20150915
  Receipt Date: 20150923
  Transmission Date: 20151125
  Serious: Yes (Other)
  Sender: FDA-Public Use
  Company Number: US-AMGEN-USASP2015092880

PATIENT
  Sex: Female

DRUGS (5)
  1. SENSIPAR [Suspect]
     Active Substance: CINACALCET HYDROCHLORIDE
     Indication: PRODUCT USED FOR UNKNOWN INDICATION
     Dosage: UNK
     Route: 065
  2. NPH                                /00030513/ [Concomitant]
     Indication: DIABETES MELLITUS
     Dosage: UNK
  3. INSULIN [Suspect]
     Active Substance: INSULIN NOS
     Indication: DIABETES MELLITUS
     Dosage: UNK
     Route: 065
  4. MIRCERA [Concomitant]
     Active Substance: METHOXY POLYETHYLENE GLYCOL-EPOETIN BETA
     Dosage: UNK
  5. EPOGEN [Suspect]
     Active Substance: ERYTHROPOIETIN
     Indication: PRODUCT USED FOR UNKNOWN INDICATION
     Dosage: UNK
     Route: 065

REACTIONS (24)
  - Diabetic eye disease [Unknown]
  - Eye disorder [Unknown]
  - Blood parathyroid hormone increased [Unknown]
  - Breast cancer [Unknown]
  - Exposure via inhalation [Unknown]
  - Cataract [Unknown]
  - Drug hypersensitivity [Unknown]
  - Malaise [Unknown]
  - Thyroid disorder [Unknown]
  - Bone disorder [Unknown]
  - Blindness [Not Recovered/Not Resolved]
  - Haemorrhage [Unknown]
  - Gait disturbance [Unknown]
  - Lower extremity mass [Unknown]
  - Eye swelling [Unknown]
  - Parathyroid disorder [Unknown]
  - Fear [Unknown]
  - Weight decreased [Unknown]
  - Cough [Unknown]
  - Swelling [Unknown]
  - Eye haemorrhage [Unknown]
  - Retinopathy [Unknown]
  - Mobility decreased [Unknown]
  - Eye pain [Unknown]
